FAERS Safety Report 23393243 (Version 1)
Quarter: 2024Q1

REPORT INFORMATION
  Report Type: Spontaneous
  Country: US (occurrence: None)
  Receive Date: 20240111
  Receipt Date: 20240111
  Transmission Date: 20240409
  Serious: Yes (Disabling)
  Sender: FDA-Public Use
  Company Number: None

PATIENT
  Age: 59 Year
  Sex: Female
  Weight: 80.55 kg

DRUGS (1)
  1. BACTRIM [Suspect]
     Active Substance: SULFAMETHOXAZOLE\TRIMETHOPRIM
     Indication: Urinary tract infection
     Dosage: OTHER QUANTITY : 1 TABLET(S);?FREQUENCY : TWICE A DAY;?
     Route: 048

REACTIONS (10)
  - Cough [None]
  - Back pain [None]
  - Urine abnormality [None]
  - Renal disorder [None]
  - Dyspnoea [None]
  - Blood creatinine increased [None]
  - Chromaturia [None]
  - Nausea [None]
  - Dry mouth [None]
  - Product use issue [None]

NARRATIVE: CASE EVENT DATE: 20231107
